FAERS Safety Report 7943365-6 (Version None)
Quarter: 2011Q4

REPORT INFORMATION
  Report Type: 
  Country: None (occurrence: None)
  Receive Date: 20111128
  Receipt Date: 20111116
  Transmission Date: 20120403
  Serious: Yes (Hospitalization)
  Sender: FDA-Public Use
  Company Number: US-BAYER-2011-005885

PATIENT
  Age: 19 Year
  Sex: Female
  Weight: 79.365 kg

DRUGS (7)
  1. DROSPIRENONE AND ETHINYL ESTRADIOL [Suspect]
     Indication: CONTRACEPTION
     Dosage: UNK
     Dates: start: 20080701, end: 20081128
  2. COUMADIN [Concomitant]
  3. NSAID'S [Concomitant]
  4. YASMIN [Suspect]
     Indication: ACNE
  5. HEPARIN [Concomitant]
  6. YASMIN [Suspect]
     Indication: CONTRACEPTION
     Dosage: UNK
     Dates: start: 20070201, end: 20080701
  7. DROSPIRENONE AND ETHINYL ESTRADIOL [Suspect]
     Indication: ACNE

REACTIONS (7)
  - ANXIETY [None]
  - PSYCHOLOGICAL TRAUMA [None]
  - PULMONARY EMBOLISM [None]
  - FEAR [None]
  - PAIN [None]
  - PLEURISY [None]
  - EMOTIONAL DISTRESS [None]
